FAERS Safety Report 7562208-6 (Version None)
Quarter: 2011Q2

REPORT INFORMATION
  Report Type: 
  Country: None (occurrence: None)
  Receive Date: 20110525
  Receipt Date: 20110413
  Transmission Date: 20111010
  Serious: No
  Sender: FDA-Public Use
  Company Number: 326666

PATIENT
  Sex: Male

DRUGS (4)
  1. GLIMEPIRIDE [Concomitant]
  2. NOVOLOG [Suspect]
     Indication: DIABETES MELLITUS
     Dosage: 20-30 IU, QD, SUBCUTANEOUS
     Route: 058
  3. VICTOZA [Suspect]
     Indication: DIABETES MELLITUS
     Dosage: SUBCUTANEOUS
     Route: 058
  4. JANUVIA [Concomitant]

REACTIONS (3)
  - GLYCOSYLATED HAEMOGLOBIN INCREASED [None]
  - WEIGHT INCREASED [None]
  - BLOOD GLUCOSE INCREASED [None]
